FAERS Safety Report 17001649 (Version 4)
Quarter: 2020Q1

REPORT INFORMATION
  Report Type: Report from Study
  Country: None (occurrence: FR)
  Receive Date: 20191106
  Receipt Date: 20200114
  Transmission Date: 20200409
  Serious: Yes (Death, Hospitalization, Other)
  Sender: FDA-Public Use
  Company Number: FR-ABBVIE-19K-056-2992882-00

PATIENT
  Age: 65 Year
  Sex: Female
  Weight: 66 kg

DRUGS (11)
  1. ROPINIROLE LP [Concomitant]
     Indication: PRODUCT USED FOR UNKNOWN INDICATION
     Dosage: LP
  2. SINEMET LP [Concomitant]
     Active Substance: CARBIDOPA\LEVODOPA
     Indication: PRODUCT USED FOR UNKNOWN INDICATION
     Dosage: 200/50, 1 TABLET
  3. ROTIGOTINE [Concomitant]
     Active Substance: ROTIGOTINE
     Indication: PRODUCT USED FOR UNKNOWN INDICATION
     Dates: start: 20191019
  4. DOMPERIDONE [Concomitant]
     Active Substance: DOMPERIDONE
     Indication: PRODUCT USED FOR UNKNOWN INDICATION
     Dates: end: 20191024
  5. DUODOPA [Suspect]
     Active Substance: CARBIDOPA\LEVODOPA
     Indication: PARKINSON^S DISEASE
     Dosage: MORNING DOSE: 13 ML, DAILY FLOW RATE: 5 ML/H FROM 6:00 AM TO 10:00 PM?20 MG/ML, 5 MG/ML
     Route: 050
     Dates: start: 20190514, end: 20191226
  6. ROPINIROLE LP [Concomitant]
  7. DICODINE [Concomitant]
     Indication: PRODUCT USED FOR UNKNOWN INDICATION
     Dates: end: 20191024
  8. EUTHYROX [Concomitant]
     Active Substance: LEVOTHYROXINE SODIUM
     Indication: HYPOTHYROIDISM
  9. MODOPAR [Concomitant]
     Active Substance: BENSERAZIDE HYDROCHLORIDE\LEVODOPA
     Indication: PRODUCT USED FOR UNKNOWN INDICATION
     Dosage: 1 TO 2 TABLET?IF NEEDED
  10. MIANSERINE [Concomitant]
     Active Substance: MIANSERIN HYDROCHLORIDE
     Indication: PRODUCT USED FOR UNKNOWN INDICATION
  11. PRIMPERAN [Concomitant]
     Active Substance: METOCLOPRAMIDE HYDROCHLORIDE
     Indication: PRODUCT USED FOR UNKNOWN INDICATION
     Dates: start: 20191024

REACTIONS (40)
  - Encephalitis [Not Recovered/Not Resolved]
  - Impaired self-care [Unknown]
  - Disturbance in attention [Not Recovered/Not Resolved]
  - Lumbar puncture [Unknown]
  - Angiotensin converting enzyme increased [Unknown]
  - Anxiety [Unknown]
  - Death [Fatal]
  - Drug interaction [Unknown]
  - Laboratory test abnormal [Unknown]
  - Gait disturbance [Unknown]
  - Vitamin B6 deficiency [Unknown]
  - Agitation [Recovered/Resolved]
  - Clostridium difficile colitis [Unknown]
  - Musculoskeletal stiffness [Unknown]
  - Subclavian vein thrombosis [Unknown]
  - Negativism [Not Recovered/Not Resolved]
  - Agitation [Recovered/Resolved]
  - Movement disorder [Unknown]
  - Ceruloplasmin decreased [Unknown]
  - Urine copper decreased [Unknown]
  - Decreased appetite [Unknown]
  - Aggression [Unknown]
  - Coma [Recovered/Resolved]
  - Agitation [Not Recovered/Not Resolved]
  - Eye movement disorder [Unknown]
  - Dehydration [Unknown]
  - CSF protein increased [Unknown]
  - Blood copper decreased [Unknown]
  - Cerebral atrophy [Unknown]
  - Negativism [Recovered/Resolved]
  - Disturbance in attention [Recovered/Resolved]
  - Tonic clonic movements [Unknown]
  - Seizure [Unknown]
  - Escherichia urinary tract infection [Unknown]
  - Arachnoid cyst [Unknown]
  - Apnoea [Not Recovered/Not Resolved]
  - Coma [Not Recovered/Not Resolved]
  - Acute kidney injury [Unknown]
  - Creutzfeldt-Jakob disease [Unknown]
  - Parkinson^s disease [Not Recovered/Not Resolved]

NARRATIVE: CASE EVENT DATE: 2019
